FAERS Safety Report 8984233 (Version 4)
Quarter: 2013Q1

REPORT INFORMATION
  Report Type: Spontaneous
  Country: GB (occurrence: GB)
  Receive Date: 20121226
  Receipt Date: 20130214
  Transmission Date: 20140127
  Serious: Yes (Other)
  Sender: FDA-Public Use
  Company Number: PHFR2012GB006271

PATIENT
  Age: 55 Year
  Sex: Male

DRUGS (2)
  1. CLOZARIL [Suspect]
     Indication: SCHIZOPHRENIA
     Dosage: 700 MG, QD
     Route: 048
     Dates: start: 20020103
  2. LITHIUM [Concomitant]
     Dosage: UNK UKN, UNK

REACTIONS (2)
  - Hepatitis B [Not Recovered/Not Resolved]
  - Platelet count decreased [Unknown]
